FAERS Safety Report 14561160 (Version 2)
Quarter: 2018Q1

REPORT INFORMATION
  Report Type: Report from Study
  Country: JP (occurrence: JP)
  Receive Date: 20180222
  Receipt Date: 20180315
  Transmission Date: 20180509
  Serious: Yes (Death, Other)
  Sender: FDA-Public Use
  Company Number: JP-BRISTOL-MYERS SQUIBB COMPANY-BMS-2018-013588

PATIENT
  Age: 82 Year
  Sex: Female
  Weight: 50 kg

DRUGS (4)
  1. ELOTUZUMAB. [Suspect]
     Active Substance: ELOTUZUMAB
     Indication: PLASMA CELL MYELOMA
     Dosage: 10 MG/KG, QWK
     Route: 041
     Dates: start: 20170523, end: 20170606
  2. DEXAMETHASONE. [Suspect]
     Active Substance: DEXAMETHASONE
     Indication: PLASMA CELL MYELOMA
     Dosage: 20 MG, QWK
     Route: 048
     Dates: start: 20170523, end: 20170606
  3. LENALIDOMIDE [Suspect]
     Active Substance: LENALIDOMIDE
     Indication: PLASMA CELL MYELOMA
     Dosage: 15 MG, QD
     Route: 048
     Dates: start: 20170523, end: 20170530
  4. DEXAMETHASONE. [Suspect]
     Active Substance: DEXAMETHASONE
     Indication: PLASMA CELL MYELOMA
     Dosage: 8 MG, QWK
     Route: 041
     Dates: start: 20170523, end: 20170606

REACTIONS (5)
  - White blood cell count decreased [Fatal]
  - Pseudomonal sepsis [Fatal]
  - Renal impairment [Fatal]
  - Condition aggravated [Unknown]
  - Malignant neoplasm progression [Fatal]

NARRATIVE: CASE EVENT DATE: 20170524
